FAERS Safety Report 7781556-8 (Version None)
Quarter: 2011Q3

REPORT INFORMATION
  Report Type: 
  Country: None (occurrence: None)
  Receive Date: 20110923
  Receipt Date: 20110908
  Transmission Date: 20111222
  Serious: Yes (Hospitalization)
  Sender: FDA-Public Use
  Company Number: 2011AP001389

PATIENT
  Age: 22 Year
  Sex: Female

DRUGS (14)
  1. ENALAPRIL MALEATE [Concomitant]
  2. OMEPRAZOLE [Concomitant]
  3. CANDESARTAN CILEXETIL [Concomitant]
  4. METHOTREXATE [Concomitant]
  5. CALCIUM CARBONATE [Concomitant]
  6. DAPSONE [Concomitant]
  7. SODIUM BICARBONATE IN PLASTIC CONTAINER [Concomitant]
  8. DOXYCYCLINE [Concomitant]
  9. FOLIC ACID [Concomitant]
  10. WARFARIN SODIUM [Concomitant]
  11. ALENDRONATE SODIUM [Concomitant]
  12. MYCOPHENOLATE MOFETIL [Suspect]
     Indication: WEGENER'S GRANULOMATOSIS
     Dosage: 1 G;TID
     Dates: start: 20070201
  13. ONDANSETRON [Concomitant]
  14. PREDNISOLONE [Concomitant]

REACTIONS (4)
  - WEGENER'S GRANULOMATOSIS [None]
  - DRUG INEFFECTIVE [None]
  - INCORRECT DOSE ADMINISTERED [None]
  - CONDITION AGGRAVATED [None]
